FAERS Safety Report 7196964-6 (Version None)
Quarter: 2010Q4

REPORT INFORMATION
  Report Type: 
  Country: None (occurrence: None)
  Receive Date: 20101224
  Receipt Date: 20101214
  Transmission Date: 20110411
  Serious: No
  Sender: FDA-Public Use
  Company Number: US-BIOGENIDEC-2010BI042563

PATIENT
  Age: 38 Year
  Sex: Female
  Weight: 78 kg

DRUGS (1)
  1. TYSABRI [Suspect]
     Indication: MULTIPLE SCLEROSIS
     Route: 042
     Dates: start: 20100412

REACTIONS (3)
  - DRUG SPECIFIC ANTIBODY PRESENT [None]
  - MULTIPLE SCLEROSIS [None]
  - SINUSITIS [None]
